FAERS Safety Report 15856732 (Version 1)
Quarter: 2019Q1

REPORT INFORMATION
  Report Type: Spontaneous
  Country: US (occurrence: US)
  Receive Date: 20190123
  Receipt Date: 20190123
  Transmission Date: 20190417
  Serious: Yes (Other)
  Sender: FDA-Public Use
  Company Number: US-SAKK-2019SA016976AA

PATIENT
  Sex: Female
  Weight: 45 kg

DRUGS (4)
  1. PLAVIX [Suspect]
     Active Substance: CLOPIDOGREL BISULFATE
     Indication: SURGERY
     Dosage: UNK UNK, QD
     Route: 048
  2. XANAX [Concomitant]
     Active Substance: ALPRAZOLAM
     Indication: BLOOD PRESSURE MEASUREMENT
     Route: 065
  3. TYLENOL [Concomitant]
     Active Substance: ACETAMINOPHEN
     Route: 065
  4. MYLANTA [CALCIUM CARBONATE] [Concomitant]
     Route: 065

REACTIONS (12)
  - Dysphagia [Unknown]
  - Abdominal distension [Unknown]
  - Pain in extremity [Unknown]
  - Nervousness [Unknown]
  - Pain [Unknown]
  - Dehydration [Unknown]
  - Gangrene [Unknown]
  - Eating disorder [Unknown]
  - Malaise [Unknown]
  - Abdominal pain upper [Unknown]
  - Feeling abnormal [Unknown]
  - Blood pressure increased [Unknown]
